FAERS Safety Report 7919616-0 (Version None)
Quarter: 2011Q4

REPORT INFORMATION
  Report Type: 
  Country: None (occurrence: None)
  Receive Date: 20111117
  Receipt Date: 20111108
  Transmission Date: 20120403
  Serious: Yes (Other)
  Sender: FDA-Public Use
  Company Number: US-JNJFOC-20111103409

PATIENT
  Sex: Male
  Weight: 77.11 kg

DRUGS (5)
  1. ZANTAC [Concomitant]
     Indication: GASTROOESOPHAGEAL REFLUX DISEASE
     Route: 048
     Dates: start: 20090101
  2. REMICADE [Suspect]
     Indication: RHEUMATOID ARTHRITIS
     Route: 042
     Dates: start: 20090101, end: 20111101
  3. HIGH BLOOD PRESSURE PILL, NOS [Concomitant]
     Indication: HYPERTENSION
     Route: 048
  4. METHOTREXATE [Concomitant]
     Indication: ARTHRITIS
     Route: 048
  5. SYNTHROID [Concomitant]
     Indication: THYROID HORMONE REPLACEMENT THERAPY
     Route: 048
     Dates: start: 19900101

REACTIONS (3)
  - WEIGHT INCREASED [None]
  - ARTHRALGIA [None]
  - MYALGIA [None]
